FAERS Safety Report 25249255 (Version 1)
Quarter: 2025Q2

REPORT INFORMATION
  Report Type: Report from Study
  Country: CA (occurrence: CA)
  Receive Date: 20250429
  Receipt Date: 20250429
  Transmission Date: 20250716
  Serious: Yes (Other)
  Sender: GILEAD
  Company Number: CA-GILEAD-2025-0711412

PATIENT
  Sex: Male

DRUGS (4)
  1. EMTRICITABINE\TENOFOVIR [Suspect]
     Active Substance: EMTRICITABINE\TENOFOVIR
     Indication: Prophylaxis against HIV infection
     Route: 065
     Dates: start: 20241118
  2. GABAPENTIN [Concomitant]
     Active Substance: GABAPENTIN
  3. CYMBALTA [Concomitant]
     Active Substance: DULOXETINE HYDROCHLORIDE
  4. DEXTROAMPHETAMINE [Concomitant]
     Active Substance: DEXTROAMPHETAMINE

REACTIONS (3)
  - Chronic hepatitis B [Recovered/Resolved]
  - Papilloma viral infection [Not Recovered/Not Resolved]
  - Neuralgia [Not Recovered/Not Resolved]
